FAERS Safety Report 15846690 (Version 1)
Quarter: 2019Q1

REPORT INFORMATION
  Report Type: Spontaneous
  Country: US (occurrence: US)
  Receive Date: 20190121
  Receipt Date: 20190121
  Transmission Date: 20190417
  Serious: Yes (Other)
  Sender: FDA-Public Use
  Company Number: US-CIPLA LTD.-2019US00269

PATIENT

DRUGS (6)
  1. ATORVASTATIN [Concomitant]
     Active Substance: ATORVASTATIN
     Indication: HYPERCHOLESTEROLAEMIA
     Dosage: 10 MG, QD
     Route: 065
     Dates: start: 201901
  2. DESVENLAFAXINE. [Concomitant]
     Active Substance: DESVENLAFAXINE
     Indication: DEPRESSION
     Dosage: 100 MG, QD
     Route: 065
     Dates: start: 2006
  3. CYCLOBENZAPRINE. [Suspect]
     Active Substance: CYCLOBENZAPRINE
     Indication: MUSCULOSKELETAL DISCOMFORT
  4. CYCLOBENZAPRINE. [Suspect]
     Active Substance: CYCLOBENZAPRINE
     Indication: BACK DISORDER
     Dosage: 10 MG, BID (ONE IN THE MORNING AND ONE BEFORE BEDTIME)
     Route: 048
  5. PANTOPRAZOLE [Concomitant]
     Active Substance: PANTOPRAZOLE
     Indication: GASTROOESOPHAGEAL REFLUX DISEASE
     Dosage: 40 MG, BID
     Route: 065
  6. MAGNESIUM [Concomitant]
     Active Substance: MAGNESIUM
     Indication: SUPPLEMENTATION THERAPY
     Dosage: UNK
     Route: 065

REACTIONS (2)
  - Blood cholesterol increased [Not Recovered/Not Resolved]
  - Dry mouth [Recovered/Resolved]

NARRATIVE: CASE EVENT DATE: 2018
